FAERS Safety Report 21978278 (Version 1)
Quarter: 2023Q1

REPORT INFORMATION
  Report Type: Spontaneous
  Country: US (occurrence: None)
  Receive Date: 20230209
  Receipt Date: 20230209
  Transmission Date: 20230418
  Serious: Yes (Other)
  Sender: FDA-Public Use
  Company Number: None

PATIENT
  Age: 78 Year
  Sex: Male
  Weight: 98.1 kg

DRUGS (1)
  1. CARBOXYMETHYLCELLULOSE SODIUM [Suspect]
     Active Substance: CARBOXYMETHYLCELLULOSE SODIUM
     Indication: Dry eye
     Dosage: FREQUENCY : AT BEDTIME;?
     Route: 047

REACTIONS (7)
  - Eye irritation [None]
  - Eye pain [None]
  - Lacrimation increased [None]
  - Photophobia [None]
  - Product container seal issue [None]
  - Corneal oedema [None]
  - Eye disorder [None]
